FAERS Safety Report 12141208 (Version 3)
Quarter: 2016Q2

REPORT INFORMATION
  Report Type: Spontaneous
  Country: US (occurrence: US)
  Receive Date: 20160303
  Receipt Date: 20160615
  Transmission Date: 20160815
  Serious: No
  Sender: FDA-Public Use
  Company Number: US-ASTRAZENECA-2016SE17708

PATIENT
  Sex: Female

DRUGS (1)
  1. BRILINTA [Suspect]
     Active Substance: TICAGRELOR
     Indication: ACUTE CORONARY SYNDROME
     Route: 048

REACTIONS (9)
  - Migraine [Unknown]
  - Amnesia [Unknown]
  - Dialysis related complication [Unknown]
  - Muscle spasms [Unknown]
  - Fatigue [Unknown]
  - Thrombosis [Unknown]
  - Haemorrhage [Unknown]
  - Confusional state [Unknown]
  - Dizziness [Unknown]
